FAERS Safety Report 16856734 (Version 1)
Quarter: 2019Q3

REPORT INFORMATION
  Report Type: Spontaneous
  Country: DE (occurrence: DE)
  Receive Date: 20190926
  Receipt Date: 20190926
  Transmission Date: 20191005
  Serious: Yes (Other)
  Sender: FDA-Public Use
  Company Number: PHHY2019DE222933

PATIENT
  Age: 60 Year
  Sex: Male
  Weight: 96 kg

DRUGS (1)
  1. CILODEX OTIC (ALC) [Suspect]
     Active Substance: CIPROFLOXACIN\DEXAMETHASONE
     Indication: PRODUCT USED FOR UNKNOWN INDICATION
     Dosage: 8 GTT, QD
     Route: 001
     Dates: start: 20190902, end: 20190906

REACTIONS (12)
  - Laryngeal oedema [Not Recovered/Not Resolved]
  - Sensation of foreign body [Not Recovered/Not Resolved]
  - Dyspnoea [Not Recovered/Not Resolved]
  - Swelling [Recovering/Resolving]
  - Erythema [Not Recovered/Not Resolved]
  - Hypophagia [Not Recovered/Not Resolved]
  - Dysphagia [Not Recovered/Not Resolved]
  - Dermatitis [Not Recovered/Not Resolved]
  - Pharyngitis [Unknown]
  - Adverse reaction [Not Recovered/Not Resolved]
  - Adverse reaction [Unknown]
  - Ear pain [Not Recovered/Not Resolved]

NARRATIVE: CASE EVENT DATE: 201909
